FAERS Safety Report 15232755 (Version 4)
Quarter: 2018Q3

REPORT INFORMATION
  Report Type: Report from Study
  Country: DE (occurrence: DE)
  Receive Date: 20180802
  Receipt Date: 20180821
  Transmission Date: 20181010
  Serious: Yes (Life-Threatening, Other)
  Sender: FDA-Public Use
  Company Number: DE-GILEAD-2018-0352241

PATIENT
  Age: 50 Year
  Sex: Female
  Weight: 45 kg

DRUGS (2)
  1. EMTRICITABINE/RILPIVIRINE/TENOFOVIR ALAFENAMIDE [Suspect]
     Active Substance: EMTRICITABINE\RILPIVIRINE HYDROCHLORIDE\TENOFOVIR ALAFENAMIDE FUMARATE
     Indication: HIV INFECTION
     Dosage: 1 DF, QD
     Route: 065
  2. POLAMIDON [Concomitant]
     Active Substance: LEVOMETHADONE

REACTIONS (1)
  - Suicide attempt [Recovered/Resolved]

NARRATIVE: CASE EVENT DATE: 20180622
